FAERS Safety Report 14168193 (Version 1)
Quarter: 2017Q4

REPORT INFORMATION
  Report Type: Other
  Country: GR (occurrence: GR)
  Receive Date: 20171108
  Receipt Date: 20171108
  Transmission Date: 20180321
  Serious: Yes (Death, Hospitalization, Congenital Anomaly, Other)
  Sender: FDA-Public Use
  Company Number: GR-MERCK KGAA-2033503

PATIENT
  Sex: Male

DRUGS (1)
  1. NOVOTHYROX [Suspect]
     Active Substance: LEVOTHYROXINE SODIUM
     Indication: POST PROCEDURAL HYPOTHYROIDISM
     Route: 050

REACTIONS (14)
  - Foetal exposure during pregnancy [Recovered/Resolved]
  - Pneumothorax [Fatal]
  - Respiratory disorder neonatal [Fatal]
  - Ascites [Fatal]
  - Cardiac arrest neonatal [Fatal]
  - Hydrops foetalis [None]
  - Foetal cardiac disorder [None]
  - Low birth weight baby [Recovered/Resolved]
  - Congenital hyperthyroidism [Fatal]
  - Circulatory failure neonatal [Fatal]
  - Pulmonary hypertension [Fatal]
  - Pleural effusion [Fatal]
  - Oedema neonatal [Fatal]
  - Premature baby [Recovered/Resolved]
